FAERS Safety Report 6248671-1 (Version None)
Quarter: 2009Q2

REPORT INFORMATION
  Report Type: 
  Country: None (occurrence: None)
  Receive Date: 20090629
  Receipt Date: 20090624
  Transmission Date: 20091009
  Serious: Yes (Life-Threatening, Hospitalization)
  Sender: FDA-Public Use
  Company Number: AU-ASTRAZENECA-2009SE03247

PATIENT
  Age: 67 Year
  Sex: Male

DRUGS (14)
  1. NEXIUM [Suspect]
     Indication: GASTRITIS
     Route: 048
  2. NEXIUM [Suspect]
     Indication: DUODENITIS
     Route: 048
  3. AUGMENTIN '125' [Suspect]
     Indication: COLLAPSE OF LUNG
     Route: 048
     Dates: start: 20081110, end: 20081115
  4. LIPITOR (LONG TERM) [Suspect]
     Indication: METABOLIC DISORDER
     Route: 048
     Dates: end: 20081207
  5. RULIDE [Suspect]
     Indication: DIARRHOEA
  6. AMARYL [Concomitant]
     Indication: DIABETES MELLITUS
  7. COLOXYL WITH SENNA [Concomitant]
     Indication: CONSTIPATION
  8. METFORMIN HCL [Concomitant]
     Indication: DIABETES MELLITUS
  9. ENALIPRIL MALEATE [Concomitant]
     Indication: ESSENTIAL HYPERTENSION
  10. FLAGYL [Concomitant]
     Indication: ABDOMINAL PAIN
  11. HYOSCINE [Concomitant]
     Indication: ABDOMINAL PAIN
  12. MOBIC [Concomitant]
     Indication: PAIN
  13. NORVASC [Concomitant]
     Indication: ESSENTIAL HYPERTENSION
  14. VITAMIN B COMPLEX CAP [Concomitant]
     Indication: HYPOVITAMINOSIS

REACTIONS (11)
  - ABDOMINAL DISCOMFORT [None]
  - ACIDOSIS [None]
  - ANOREXIA [None]
  - COAGULOPATHY [None]
  - ENCEPHALOPATHY [None]
  - HYPOGLYCAEMIA [None]
  - JAUNDICE [None]
  - NAUSEA [None]
  - RENAL FAILURE ACUTE [None]
  - RHABDOMYOLYSIS [None]
  - SOMNOLENCE [None]
